FAERS Safety Report 14598845 (Version 1)
Quarter: 2018Q1

REPORT INFORMATION
  Report Type: Spontaneous
  Country: US (occurrence: US)
  Receive Date: 20180302
  Receipt Date: 20180302
  Transmission Date: 20180509
  Serious: Yes (Hospitalization)
  Sender: FDA-Public Use
  Company Number: None

PATIENT
  Age: 69 Year
  Sex: Male
  Weight: 67 kg

DRUGS (2)
  1. 177LU-DOTAO -TYR3-OCTREOTATE [Suspect]
     Active Substance: LUTETIUM OXODOTREOTIDE LU-177
     Indication: SMALL CELL LUNG CANCER
     Dosage: 3.7 GBQ (100 MCI) EVERY 8 WEEKS INTRAVENOUS (NOT OTHERWISE SPECIFIED)
     Route: 042
     Dates: start: 20180104, end: 20180301
  2. NIVOLUMAB, 240MG [Suspect]
     Active Substance: NIVOLUMAB
     Indication: SMALL CELL LUNG CANCER
     Dosage: 240 MG EVERY 2 WEEKS INTRAVENOUS (NOT OTHERWISE SPECIFIED)
     Route: 042
     Dates: start: 20171221, end: 20180301

REACTIONS (2)
  - Tachycardia [None]
  - Nausea [None]

NARRATIVE: CASE EVENT DATE: 20180301
